FAERS Safety Report 7829283-2 (Version None)
Quarter: 2011Q4

REPORT INFORMATION
  Report Type: 
  Country: None (occurrence: None)
  Receive Date: 20111020
  Receipt Date: 20111006
  Transmission Date: 20120403
  Serious: Yes (Hospitalization)
  Sender: FDA-Public Use
  Company Number: CH-BAYER-2011-095216

PATIENT
  Age: 79 Year
  Sex: Male

DRUGS (8)
  1. ATORVASTATIN CALCIUM [Concomitant]
     Indication: CARDIOVASCULAR DISORDER
     Dosage: DAILY DOSE 20 MG
     Route: 048
  2. CONCOR [Concomitant]
     Indication: CARDIOVASCULAR DISORDER
     Dosage: DAILY DOSE 2.5 MG
  3. SPIRIVA [Concomitant]
     Indication: CHRONIC OBSTRUCTIVE PULMONARY DISEASE
     Dosage: DAILY DOSE 18 ?G
     Route: 055
  4. SINTROM [Interacting]
     Indication: CARDIOVASCULAR DISORDER
     Dosage: 1 MG, PRN
     Route: 048
     Dates: start: 20101001, end: 20110907
  5. ASPIRIN [Suspect]
     Indication: CARDIOVASCULAR DISORDER
     Dosage: 100 MG, QD
     Route: 048
  6. ESIDRIX [Concomitant]
     Indication: CARDIOVASCULAR DISORDER
     Route: 048
  7. FOSAMAX [Concomitant]
     Indication: OSTEOPOROSIS
     Route: 048
  8. CALCIMAGON-D3 [Concomitant]
     Indication: OSTEOPOROSIS
     Route: 048

REACTIONS (1)
  - OESOPHAGEAL HAEMORRHAGE [None]
